FAERS Safety Report 17863627 (Version 8)
Quarter: 2020Q4

REPORT INFORMATION
  Report Type: Report from Study
  Country: US (occurrence: US)
  Receive Date: 20200605
  Receipt Date: 20201118
  Transmission Date: 20210113
  Serious: Yes (Life-Threatening, Hospitalization, Other)
  Sender: FDA-Public Use
  Company Number: US-SA-2020SA127964

PATIENT

DRUGS (37)
  1. SARILUMAB [Suspect]
     Active Substance: SARILUMAB
     Dosage: 400 MG, 1X
     Route: 042
     Dates: start: 20200502, end: 20200502
  2. PROPOFOL. [Concomitant]
     Active Substance: PROPOFOL
     Indication: SEDATION
     Dosage: 1000 MG, CONT
     Route: 042
     Dates: start: 20200501
  3. FAMOTIDINE. [Concomitant]
     Active Substance: FAMOTIDINE
     Indication: ANTACID THERAPY
     Dosage: 20 MG, BID
     Route: 042
     Dates: start: 20200501, end: 20200504
  4. SPIRONOLACTONE. [Concomitant]
     Active Substance: SPIRONOLACTONE
     Indication: DIURETIC THERAPY
     Dosage: 12.5 MG, QD
     Route: 048
     Dates: start: 20200505
  5. EPINEPHRINE. [Concomitant]
     Active Substance: EPINEPHRINE
     Indication: COVID-19
     Dosage: 16 MG, CONT
     Route: 042
     Dates: start: 20200517, end: 20200517
  6. FRESH FROZEN PLASMA [Concomitant]
     Active Substance: HUMAN PLASMA
     Indication: COVID-19
     Dosage: 198 ML, 1X
     Route: 042
     Dates: start: 20200517, end: 20200517
  7. DOBUTAMINE [Concomitant]
     Active Substance: DOBUTAMINE HYDROCHLORIDE
     Dosage: 5 UG, CONT
     Route: 042
     Dates: start: 20200501, end: 20200502
  8. DOBUTAMINE [Concomitant]
     Active Substance: DOBUTAMINE HYDROCHLORIDE
     Indication: CARDIAC FAILURE
     Dosage: 3 UG, CONT
     Route: 042
     Dates: start: 20200504, end: 20200506
  9. ATORVASTIN [Concomitant]
     Active Substance: ATORVASTATIN
     Indication: CARDIOVASCULAR DISORDER
     Dosage: 10 MG, QD
     Route: 048
     Dates: start: 20200506
  10. ASPIRIN [ACETYLSALICYLIC ACID] [Concomitant]
     Active Substance: ASPIRIN
     Indication: ANTICOAGULANT THERAPY
     Dosage: 81 MG, QD
     Route: 048
     Dates: start: 20200505
  11. CLOPIDOGREL [Concomitant]
     Active Substance: CLOPIDOGREL BISULFATE
     Indication: ANTICOAGULANT THERAPY
     Dosage: 75 MG, QD
     Route: 048
     Dates: start: 20200505
  12. POTASSIUM CHLORIDE. [Concomitant]
     Active Substance: POTASSIUM CHLORIDE
     Indication: ELECTROLYTE SUBSTITUTION THERAPY
     Dosage: 20 MEQ, CONTINUOS INFUSION
     Route: 042
     Dates: start: 20200501
  13. INSULIN [Concomitant]
     Active Substance: INSULIN NOS
     Indication: DIABETES MELLITUS MANAGEMENT
  14. NOREPINEPHRINE. [Concomitant]
     Active Substance: NOREPINEPHRINE
     Indication: COVID-19
     Dosage: 4 MG, CONT
     Route: 042
     Dates: start: 20200501, end: 20200505
  15. MIDAZOLAM. [Concomitant]
     Active Substance: MIDAZOLAM
     Indication: SEDATIVE THERAPY
     Dosage: 100 MG, CONT
     Route: 042
     Dates: start: 20200501
  16. POLYETHYLENE GLYCOL 3350. [Concomitant]
     Active Substance: POLYETHYLENE GLYCOL 3350
     Indication: LAXATIVE SUPPORTIVE CARE
     Dosage: 1 PKT(S), QD
     Route: 048
     Dates: start: 20200508
  17. SARILUMAB [Suspect]
     Active Substance: SARILUMAB
     Indication: COVID-19
     Dosage: 400 MG, 1X
     Route: 042
     Dates: start: 20200501, end: 20200501
  18. HYDROXYCHLOROQUINE [Concomitant]
     Active Substance: HYDROXYCHLOROQUINE
     Indication: COVID-19
     Dosage: 200 MG, BID
     Route: 048
     Dates: start: 20200501, end: 20200501
  19. SODIUM BICARBONATE. [Concomitant]
     Active Substance: SODIUM BICARBONATE
     Indication: METABOLIC ACIDOSIS
     Dosage: 50 MEQ, 1X
     Route: 042
     Dates: start: 20200501, end: 20200501
  20. FUROSEMIDE. [Concomitant]
     Active Substance: FUROSEMIDE
     Indication: DIURETIC THERAPY
     Dosage: 40 MG, QD
     Route: 042
     Dates: start: 20200505, end: 20200506
  21. HEPARIN [Concomitant]
     Active Substance: HEPARIN SODIUM
     Indication: PROPHYLAXIS
     Dosage: 12 UNIT/KG/HR, CONT
     Route: 042
     Dates: start: 20200505
  22. POTASSIUM CHLORIDE. [Concomitant]
     Active Substance: POTASSIUM CHLORIDE
     Indication: ELECTROLYTE SUBSTITUTION THERAPY
     Dosage: 10 MEQ, CONTINUOS INFUSION
     Route: 042
     Dates: start: 20200505, end: 20200506
  23. PANTOPRAZOLE [Concomitant]
     Active Substance: PANTOPRAZOLE
     Indication: ANTACID THERAPY
     Dosage: 40 MG, BID
     Route: 042
     Dates: start: 20200517
  24. FENTANYL. [Concomitant]
     Active Substance: FENTANYL
     Indication: ANALGESIC THERAPY
     Dosage: 2500 MCG/HR, CONT
     Route: 042
     Dates: start: 20200501
  25. VECURONIUM [Concomitant]
     Active Substance: VECURONIUM BROMIDE
     Indication: PARALYSIS
     Dosage: 100 MG, CONT
     Route: 042
     Dates: start: 20200501
  26. METHYLPREDNISOLONE [METHYLPREDNISOLONE SODIUM SUCCINATE] [Concomitant]
     Active Substance: METHYLPREDNISOLONE SODIUM SUCCINATE
     Indication: STEROID THERAPY
     Dosage: 60 MG, QID
     Route: 042
     Dates: start: 20200501, end: 20200504
  27. DEXMEDETOMIDINE. [Concomitant]
     Active Substance: DEXMEDETOMIDINE
     Indication: SEDATIVE THERAPY
     Dosage: 400 ?G, CONT
     Route: 042
     Dates: start: 20200511
  28. ACETAZOLAMIDE. [Concomitant]
     Active Substance: ACETAZOLAMIDE
     Indication: DIURETIC THERAPY
     Dosage: 250 MG, ONCE
     Route: 042
     Dates: start: 20200513, end: 20200513
  29. SARILUMAB [Suspect]
     Active Substance: SARILUMAB
     Dosage: 400 MG, 1X
     Route: 042
     Dates: start: 20200509, end: 20200509
  30. FENTANYL. [Concomitant]
     Active Substance: FENTANYL
     Dosage: 50-100 ?G, PRN
     Route: 042
     Dates: start: 20200501, end: 20200501
  31. MAGNESIUM SULFATE. [Concomitant]
     Active Substance: MAGNESIUM SULFATE
     Indication: ELECTROLYTE SUBSTITUTION THERAPY
     Dosage: 1 100 ML/HR, PRN
     Route: 042
     Dates: start: 20200510
  32. METHYLPREDNISOLONE [METHYLPREDNISOLONE SODIUM SUCCINATE] [Concomitant]
     Active Substance: METHYLPREDNISOLONE SODIUM SUCCINATE
     Indication: COVID-19
     Dosage: 40 MG, TID
     Route: 042
     Dates: start: 20200501
  33. FUROSEMIDE. [Concomitant]
     Active Substance: FUROSEMIDE
     Dosage: 20 MG, TID
     Route: 042
     Dates: start: 20200506
  34. NICOTINE. [Concomitant]
     Active Substance: NICOTINE
     Indication: NICOTINE DEPENDENCE
     Dosage: 21 MG, QD
     Route: 062
     Dates: start: 20200501, end: 20200507
  35. NICOTINE. [Concomitant]
     Active Substance: NICOTINE
     Indication: NICOTINE DEPENDENCE
  36. MAGNESIUM SULFATE. [Concomitant]
     Active Substance: MAGNESIUM SULFATE
     Indication: ELECTROLYTE SUBSTITUTION THERAPY
  37. INSULIN [Concomitant]
     Active Substance: INSULIN NOS
     Indication: DIABETES MELLITUS MANAGEMENT
     Dosage: 0-5 UNIT, Q4H
     Route: 042
     Dates: start: 20200516

REACTIONS (13)
  - Lung infiltration [Recovered/Resolved]
  - Atrial fibrillation [Not Recovered/Not Resolved]
  - Neutropenia [Recovered/Resolved]
  - Transaminases increased [Not Recovered/Not Resolved]
  - Leukopenia [Recovered/Resolved]
  - Groin abscess [Recovered/Resolved]
  - Anaemia [Recovered/Resolved]
  - Dermatitis [Recovered/Resolved]
  - Cardiogenic shock [Recovered/Resolved]
  - Hypotension [Recovered/Resolved with Sequelae]
  - Ventricular tachycardia [Recovered/Resolved]
  - Cardiac arrest [Recovered/Resolved]
  - Gastrointestinal haemorrhage [Recovered/Resolved]

NARRATIVE: CASE EVENT DATE: 20200508
